FAERS Safety Report 6434826-X (Version None)
Quarter: 2009Q4

REPORT INFORMATION
  Report Type: 
  Country: None (occurrence: None)
  Receive Date: 20091110
  Receipt Date: 20091106
  Transmission Date: 20100525
  Serious: Yes (Death)
  Sender: FDA-Public Use
  Company Number: JP-JNJFOC-20091004816

PATIENT
  Sex: Male
  Weight: 50 kg

DRUGS (36)
  1. DUROTEP [Suspect]
     Dosage: COVERED 1/2 AREA OF PATCH
     Route: 062
  2. DUROTEP [Suspect]
     Dosage: COVERED 1/2 AREA OF PATCH
     Route: 062
  3. DUROTEP [Suspect]
     Dosage: COVERED 1/4 AREA OF PATCH
     Route: 062
  4. DUROTEP [Suspect]
     Indication: CANCER PAIN
     Dosage: COVERED 1/2 AREA OF PATCH
     Route: 062
  5. OXYCONTIN [Concomitant]
     Indication: CANCER PAIN
     Route: 048
  6. ROPION [Concomitant]
     Indication: CANCER PAIN
     Route: 042
  7. NORVASC [Concomitant]
     Indication: HYPERTENSION
     Route: 048
  8. DIOVAN [Concomitant]
     Indication: HYPERTENSION
     Route: 048
  9. MOBIC [Concomitant]
     Indication: ANALGESIC THERAPY
     Route: 048
  10. ACINON [Concomitant]
     Indication: PROPHYLAXIS
     Route: 048
  11. ARICEPT [Concomitant]
     Indication: DEMENTIA ALZHEIMER'S TYPE
     Route: 048
  12. ANTIBIOPHILUS [Concomitant]
     Indication: PROPHYLAXIS
     Route: 048
  13. ADONA [Concomitant]
     Route: 048
  14. STANZOME [Concomitant]
     Indication: PROPHYLAXIS
     Route: 048
  15. SEROQUEL [Concomitant]
     Indication: DEMENTIA ALZHEIMER'S TYPE
     Route: 048
  16. RISPERDAL [Concomitant]
     Route: 048
  17. RISPERDAL [Concomitant]
     Indication: DEMENTIA ALZHEIMER'S TYPE
     Route: 048
  18. ATARAX [Concomitant]
     Indication: DEMENTIA ALZHEIMER'S TYPE
     Route: 048
  19. VOLTAREN [Concomitant]
     Indication: ANALGESIC THERAPY
     Route: 054
  20. GLYCERINE [Concomitant]
     Indication: CONSTIPATION
     Route: 054
  21. LECICARBON [Concomitant]
     Indication: CONSTIPATION
     Route: 054
  22. ZINC OXIDE [Concomitant]
     Route: 061
  23. ZINC OXIDE [Concomitant]
     Indication: HAEMORRHOIDS
     Route: 061
  24. POSTERISAN [Concomitant]
     Indication: HAEMORRHOIDS
     Route: 061
  25. VITAMEDIN [Concomitant]
     Indication: PROPHYLAXIS
     Route: 042
  26. VITAJECT [Concomitant]
     Indication: HYPOPHAGIA
     Route: 041
  27. ZANTAC [Concomitant]
     Indication: PROPHYLAXIS
     Route: 042
  28. AMIKACIN SULFATE [Concomitant]
     Indication: PYREXIA
     Route: 042
  29. ROPION [Concomitant]
     Indication: ANALGESIC THERAPY
     Route: 042
  30. SOLDEM 3A [Concomitant]
     Indication: HYPOPHAGIA
     Route: 042
  31. SOLDEM 1 [Concomitant]
     Route: 042
  32. SOLDEM 1 [Concomitant]
     Route: 042
  33. SOLDEM 1 [Concomitant]
     Indication: HYPOPHAGIA
     Route: 042
  34. AMINOTRIPA 1 [Concomitant]
     Indication: HYPOPHAGIA
     Route: 042
  35. GLUCOSE [Concomitant]
     Route: 042
  36. GLUCOSE [Concomitant]
     Indication: HYPOPHAGIA
     Route: 042

REACTIONS (6)
  - ARRHYTHMIA [None]
  - DYSPHAGIA [None]
  - PAIN [None]
  - PYREXIA [None]
  - URETERIC CANCER [None]
  - WRONG TECHNIQUE IN DRUG USAGE PROCESS [None]
